FAERS Safety Report 17816404 (Version 1)
Quarter: 2020Q2

REPORT INFORMATION
  Report Type: Spontaneous
  Country: CO (occurrence: CO)
  Receive Date: 20200522
  Receipt Date: 20200522
  Transmission Date: 20200714
  Serious: Yes (Other)
  Sender: FDA-Public Use
  Company Number: CO-PFIZER INC-2019384255

PATIENT
  Age: 65 Year
  Sex: Female

DRUGS (2)
  1. AROMASIN [Concomitant]
     Active Substance: EXEMESTANE
     Indication: BREAST CANCER METASTATIC
     Dosage: UNK
  2. REAMPLA [Suspect]
     Active Substance: PALBOCICLIB
     Indication: BREAST CANCER METASTATIC
     Dosage: 125 MG, UNK
     Route: 048
     Dates: start: 2018

REACTIONS (6)
  - Neoplasm progression [Unknown]
  - Decreased immune responsiveness [Unknown]
  - Headache [Not Recovered/Not Resolved]
  - Herpes virus infection [Unknown]
  - Insomnia [Not Recovered/Not Resolved]
  - Major depression [Not Recovered/Not Resolved]

NARRATIVE: CASE EVENT DATE: 201908
